FAERS Safety Report 22291817 (Version 17)
Quarter: 2023Q4

REPORT INFORMATION
  Report Type: Report from Study
  Country: CH (occurrence: CH)
  Receive Date: 20230507
  Receipt Date: 20231229
  Transmission Date: 20240109
  Serious: Yes (Hospitalization)
  Sender: FDA-Public Use
  Company Number: CH-ABBVIE-4753083

PATIENT
  Age: 68 Year
  Sex: Male

DRUGS (22)
  1. CARBIDOPA\LEVODOPA [Suspect]
     Active Substance: CARBIDOPA\LEVODOPA
     Indication: Parkinson^s disease
     Dosage: MD: 4.0 ML, CRD: 3.5 ML/H, ED: 1.0 ML, CRN: 2.2 ML/H?24H THERAPY
     Route: 050
     Dates: start: 20220923, end: 20221029
  2. CARBIDOPA\LEVODOPA [Suspect]
     Active Substance: CARBIDOPA\LEVODOPA
     Dosage: MD: 0.5 ML, CRD: 4.0  ML/H, ED: 0.3 ML, CRN: 2.8 ML/H?24H THERAPY
     Route: 050
     Dates: start: 20221221, end: 202304
  3. CARBIDOPA\LEVODOPA [Suspect]
     Active Substance: CARBIDOPA\LEVODOPA
     Dosage: MD: 1.0 ML, CRD: 2.8 ML/H, ED: 0.5 ML, CRN: 2.0ML/H 16H THERAPY
     Route: 050
     Dates: start: 20220920, end: 20220923
  4. CARBIDOPA\LEVODOPA [Suspect]
     Active Substance: CARBIDOPA\LEVODOPA
     Dosage: MD: 0.5 ML, CRD: 4.0  ML/H, ED: 0.3 ML, CRN: 2.8 ML/H?24H THERAPY
     Route: 050
     Dates: start: 20230427, end: 20230501
  5. CARBIDOPA\LEVODOPA [Suspect]
     Active Substance: CARBIDOPA\LEVODOPA
     Dosage: MD: 2.0 ML, CRD: 4.0  ML/H, ED: 0.6 ML, CRN: 2.5 ML/H?16H THERAPY
     Route: 050
     Dates: start: 20221125, end: 20221221
  6. CARBIDOPA\LEVODOPA [Suspect]
     Active Substance: CARBIDOPA\LEVODOPA
     Dosage: MD: 1.0 ML, CRD: 2.0 ML/H, ED: 1.0 ML?24H THERAPY
     Route: 050
     Dates: start: 20220919, end: 20220920
  7. CARBIDOPA\LEVODOPA [Suspect]
     Active Substance: CARBIDOPA\LEVODOPA
     Dosage: MD: 0.4 ML, CRD: 4.0  ML/H, ED: 0.2 ML, CRN: 2.8 ML/H?24H THERAPY
     Route: 050
     Dates: start: 20230424, end: 20230427
  8. CARBIDOPA\LEVODOPA [Suspect]
     Active Substance: CARBIDOPA\LEVODOPA
     Dosage: CRD: 2.9 ML/H24H THERAPY
     Route: 050
     Dates: start: 20221029, end: 20221125
  9. CARBIDOPA\LEVODOPA [Suspect]
     Active Substance: CARBIDOPA\LEVODOPA
     Dosage: MD: 2.0 ML, CRD: 4.1  ML/H, ED: 0.3 ML, CRN: 2.8 ML/H
     Route: 050
     Dates: start: 20230501, end: 20230502
  10. CARBIDOPA\LEVODOPA [Suspect]
     Active Substance: CARBIDOPA\LEVODOPA
     Dosage: MD: 5.0 ML, CRD: 5.5  ML/H, ED: 1.5 ML, CRN: 3.3 ML/H
     Route: 050
     Dates: start: 20230502, end: 20230503
  11. CARBIDOPA\LEVODOPA [Suspect]
     Active Substance: CARBIDOPA\LEVODOPA
     Dosage: MD: 2.0 ML, CRD: 4.3  ML/H, ED: 0.3 ML, CRN: 2.9 ML/H
     Route: 050
     Dates: start: 20230503, end: 20230519
  12. CARBIDOPA\LEVODOPA [Suspect]
     Active Substance: CARBIDOPA\LEVODOPA
     Dosage: MD: 2.0 ML, CRD: 4.4  ML/H, ED: 0.3 ML, CRN: 2.9 ML/H
     Route: 050
     Dates: start: 20230519, end: 20230522
  13. CARBIDOPA\LEVODOPA [Suspect]
     Active Substance: CARBIDOPA\LEVODOPA
     Dosage: MD: 2.0 ML, CRD: 4.2 ML/H, ED: 0.2 ML, CRN: 2.9 ML/H?STOP DATE-2023
     Route: 050
     Dates: start: 20230522
  14. CARBIDOPA\LEVODOPA [Suspect]
     Active Substance: CARBIDOPA\LEVODOPA
     Dosage: MD: 2 ML, CRD: 3.9 ML/H, ED: 0.1 ML, CRN: 2.7 ML/H
     Route: 050
     Dates: start: 20230808, end: 20230811
  15. CARBIDOPA\LEVODOPA [Suspect]
     Active Substance: CARBIDOPA\LEVODOPA
     Dosage: MD: 1 ML, CRD: 3.9 ML/H, ED: 0.1 ML, CRN: 2.7 ML/H
     Route: 050
     Dates: start: 20230811, end: 20230817
  16. CARBIDOPA\LEVODOPA [Suspect]
     Active Substance: CARBIDOPA\LEVODOPA
     Dosage: MD: 2 ML, CRD: 3.9 ML/H, ED: 0.1 ML, CRN: 2.7 ML/H
     Route: 050
     Dates: start: 20230817, end: 20230824
  17. CARBIDOPA\LEVODOPA [Suspect]
     Active Substance: CARBIDOPA\LEVODOPA
     Dosage: MD: 2 ML, CRD: 4.0 ML/H, ED: 0.2 ML, CRN: 2.7 ML/H
     Route: 050
     Dates: start: 20230824, end: 20230829
  18. CARBIDOPA\LEVODOPA [Suspect]
     Active Substance: CARBIDOPA\LEVODOPA
     Dosage: MD: 2 ML, CRD: 3.9 ML/H, ED: 0.5 ML, CRN: UNKNOWN ML/H
     Route: 050
     Dates: start: 20231010, end: 20231025
  19. CARBIDOPA\LEVODOPA [Suspect]
     Active Substance: CARBIDOPA\LEVODOPA
     Dosage: MD: 0.1 ML, CRD: 3.9  ML/H, ED: 2.1 ML, CRN: 2.9 ML/H
     Route: 050
     Dates: start: 202304, end: 20230424
  20. CARBIDOPA\LEVODOPA [Suspect]
     Active Substance: CARBIDOPA\LEVODOPA
     Dosage: MD: 2 ML, CRD: 4.0 ML/H, ED: 0.2 ML, CRN: 2.8 ML/H
     Route: 050
     Dates: start: 20230829, end: 20231010
  21. CARBIDOPA\LEVODOPA [Suspect]
     Active Substance: CARBIDOPA\LEVODOPA
     Dosage: MD: 2 ML, CRD: 3.9 ML/H, ED: 0.3 ML, CRN: UNKNOWN ML/H?FREQUENCY TEXT: 24H THERAPY
     Route: 050
     Dates: start: 20231025
  22. CARBIDOPA\LEVODOPA [Suspect]
     Active Substance: CARBIDOPA\LEVODOPA
     Dosage: MD: 0.3 ML,  CRD: 3.9 ML/H, ED: 0.1 ML, CRN: 2.7 ML/H?START DATE-2023
     Route: 050
     Dates: end: 20230808

REACTIONS (15)
  - Deep brain stimulation [Not Recovered/Not Resolved]
  - Discomfort [Not Recovered/Not Resolved]
  - Hyperkinesia [Not Recovered/Not Resolved]
  - Freezing phenomenon [Not Recovered/Not Resolved]
  - Stress [Not Recovered/Not Resolved]
  - Hyperplasia [Not Recovered/Not Resolved]
  - Freezing phenomenon [Recovered/Resolved]
  - Dyskinesia [Not Recovered/Not Resolved]
  - Stoma site hypergranulation [Not Recovered/Not Resolved]
  - On and off phenomenon [Not Recovered/Not Resolved]
  - Therapeutic product effect incomplete [Not Recovered/Not Resolved]
  - Dyskinesia [Recovered/Resolved]
  - Drug hypersensitivity [Not Recovered/Not Resolved]
  - Drug ineffective [Not Recovered/Not Resolved]
  - Adverse drug reaction [Not Recovered/Not Resolved]

NARRATIVE: CASE EVENT DATE: 20230101
